FAERS Safety Report 25890113 (Version 1)
Quarter: 2025Q4

REPORT INFORMATION
  Report Type: Spontaneous
  Country: CN (occurrence: CN)
  Receive Date: 20251007
  Receipt Date: 20251007
  Transmission Date: 20260118
  Serious: Yes (Other)
  Sender: NOVARTIS
  Company Number: CN-002147023-NVSC2025CN150019

PATIENT
  Age: 84 Year
  Sex: Female
  Weight: 70 kg

DRUGS (1)
  1. SACUBITRIL\VALSARTAN [Suspect]
     Active Substance: SACUBITRIL\VALSARTAN
     Indication: Hypertension
     Dosage: 100 MG, QD
     Route: 048
     Dates: start: 20250215, end: 2025

REACTIONS (4)
  - Hypotension [Recovering/Resolving]
  - Palpitations [Unknown]
  - Depressed mood [Unknown]
  - Dizziness [Unknown]

NARRATIVE: CASE EVENT DATE: 20250201
